FAERS Safety Report 9120967 (Version 1)
Quarter: 2013Q1

REPORT INFORMATION
  Report Type: Spontaneous
  Country: JP (occurrence: JP)
  Receive Date: 20130226
  Receipt Date: 20130226
  Transmission Date: 20140127
  Serious: Yes (Death)
  Sender: FDA-Public Use
  Company Number: PHHY2013JP018149

PATIENT
  Age: 70 Year
  Sex: Female

DRUGS (3)
  1. PREDNISOLONE [Suspect]
     Indication: GLOMERULONEPHRITIS
  2. ACETYLSALICYLIC ACID [Suspect]
     Dosage: DAILY
  3. HEPARIN [Suspect]

REACTIONS (4)
  - Shock haemorrhagic [Fatal]
  - Haemorrhage [Fatal]
  - Thoracic haemorrhage [Fatal]
  - Pain in extremity [Fatal]
